FAERS Safety Report 10308232 (Version 1)
Quarter: 2014Q3

REPORT INFORMATION
  Report Type: Spontaneous
  Country: US (occurrence: US)
  Receive Date: 20140716
  Receipt Date: 20140716
  Transmission Date: 20150326
  Serious: Yes (Death)
  Sender: FDA-Public Use
  Company Number: US-AMGEN-USASP2014052888

PATIENT
  Age: 62 Year
  Sex: Male

DRUGS (2)
  1. VECTIBIX [Suspect]
     Active Substance: PANITUMUMAB
     Indication: METASTASES TO THE RESPIRATORY SYSTEM
     Dosage: 474 MILLLIGRAMS, EVERY TWO WEEKS
     Route: 042
  2. VECTIBIX [Suspect]
     Active Substance: PANITUMUMAB
     Indication: METASTASES TO GASTROINTESTINAL TRACT

REACTIONS (1)
  - Death [Fatal]

NARRATIVE: CASE EVENT DATE: 20140128
